FAERS Safety Report 5517668-9 (Version None)
Quarter: 2007Q4

REPORT INFORMATION
  Report Type: 
  Country: None (occurrence: None)
  Receive Date: 20071114
  Receipt Date: 20071108
  Transmission Date: 20080405
  Serious: Yes (Other)
  Sender: FDA-Public Use
  Company Number: US-BOEHRINGER INGELHEIM PHARMACEUTICALS, INC.-2007-BP-23034BP

PATIENT
  Sex: Male

DRUGS (9)
  1. CLONIDINE HCL [Suspect]
     Indication: HYPERTENSION
  2. NORVASC [Concomitant]
  3. NEXIUM [Concomitant]
  4. NEURONTIN [Concomitant]
  5. XANAX [Concomitant]
  6. PERCOCET [Concomitant]
  7. LYRICA [Concomitant]
  8. BOOST [Concomitant]
  9. AND OTHER MEDS [Concomitant]

REACTIONS (3)
  - CARDIAC PACEMAKER INSERTION [None]
  - GENERAL PHYSICAL CONDITION ABNORMAL [None]
  - MITRAL VALVE REPLACEMENT [None]
